FAERS Safety Report 7458471-2 (Version None)
Quarter: 2011Q2

REPORT INFORMATION
  Report Type: 
  Country: None (occurrence: None)
  Receive Date: 20110504
  Receipt Date: 20110426
  Transmission Date: 20111010
  Serious: Yes (Hospitalization)
  Sender: FDA-Public Use
  Company Number: R0001343A

PATIENT
  Age: 75 Year
  Sex: Female
  Weight: 64.09 kg

DRUGS (8)
  1. CITRUCEL [Suspect]
     Dosage: 1UNIT PER DAY
     Route: 048
     Dates: start: 20050101
  2. MAALOX [Suspect]
     Dosage: 1U PER DAY
     Route: 048
     Dates: start: 20050101
  3. MORPHINE [Suspect]
     Dosage: 15MG PER DAY
     Route: 048
     Dates: start: 20070101
  4. FLU TRIVALENT SPLIT + AS03/2 [Suspect]
     Route: 030
     Dates: start: 20081007, end: 20081007
  5. DULCOLAX [Suspect]
     Dosage: 300MG PER DAY
     Route: 048
     Dates: start: 20050101
  6. MIRALAX [Suspect]
     Dosage: 1U PER DAY
     Route: 048
     Dates: start: 20050101
  7. TYLENOL W/ CODEINE NO. 3 [Suspect]
     Dosage: 3MG PER DAY
     Route: 048
     Dates: start: 20030101
  8. SENOKOT [Suspect]
     Indication: DIVERTICULITIS
     Dosage: 2TAB PER DAY
     Route: 048
     Dates: start: 20050101

REACTIONS (2)
  - DIVERTICULITIS [None]
  - CONSTIPATION [None]
